FAERS Safety Report 19873440 (Version 1)
Quarter: 2021Q3

REPORT INFORMATION
  Report Type: Spontaneous
  Country: US (occurrence: US)
  Receive Date: 20210923
  Receipt Date: 20210923
  Transmission Date: 20211014
  Serious: No
  Sender: FDA-Public Use
  Company Number: US-MILLICENT HOLDINGS LTD.-MILL20210884

PATIENT
  Age: 62 Year
  Sex: Female

DRUGS (5)
  1. INTRAROSA [Suspect]
     Active Substance: PRASTERONE
     Indication: DYSPAREUNIA
     Dosage: 1
     Route: 067
     Dates: start: 20210813, end: 20210814
  2. INTRAROSA [Suspect]
     Active Substance: PRASTERONE
     Dosage: 1
     Route: 067
     Dates: start: 20210804, end: 20210806
  3. INTRAROSA [Suspect]
     Active Substance: PRASTERONE
     Route: 067
     Dates: start: 2018
  4. INTRAROSA [Suspect]
     Active Substance: PRASTERONE
     Dosage: 1
     Route: 067
     Dates: start: 20210811, end: 20210811
  5. ANTIBIOTICS [Concomitant]
     Active Substance: UNSPECIFIED INGREDIENT

REACTIONS (5)
  - Vaginal pH abnormal [Unknown]
  - Product dose omission issue [None]
  - Vulvovaginal discomfort [Recovered/Resolved]
  - Vulvovaginal mycotic infection [Unknown]
  - Vaginal discharge [Recovered/Resolved]

NARRATIVE: CASE EVENT DATE: 202104
